FAERS Safety Report 16516089 (Version 3)
Quarter: 2019Q3

REPORT INFORMATION
  Report Type: Spontaneous
  Country: US (occurrence: US)
  Receive Date: 20190702
  Receipt Date: 20190904
  Transmission Date: 20191004
  Serious: No
  Sender: FDA-Public Use
  Company Number: US-PFIZER INC-2019273369

PATIENT
  Age: 84 Year

DRUGS (3)
  1. LYRICA [Suspect]
     Active Substance: PREGABALIN
     Indication: PAIN IN EXTREMITY
     Dosage: 25 (UNSPECIFIED UNIT) 3X/DAY
  2. LYRICA [Suspect]
     Active Substance: PREGABALIN
     Indication: VARICELLA ZOSTER VIRUS INFECTION
     Dosage: UNK, 1X/DAY
  3. LYRICA [Suspect]
     Active Substance: PREGABALIN
     Dosage: 25 MG, DAILY
     Route: 048
     Dates: start: 20180907

REACTIONS (1)
  - Pain in extremity [Unknown]
